FAERS Safety Report 16796782 (Version 3)
Quarter: 2020Q1

REPORT INFORMATION
  Report Type: Report from Study
  Country: BE (occurrence: BE)
  Receive Date: 20190911
  Receipt Date: 20200106
  Transmission Date: 20200409
  Serious: Yes (Death, Life-Threatening, Hospitalization, Other)
  Sender: FDA-Public Use
  Company Number: BE-INCYTE CORPORATION-2019IN008746

PATIENT

DRUGS (2)
  1. MISTLETOE [Concomitant]
     Active Substance: VISCUM ALBUM FRUITING TOP
     Indication: SUPPORTIVE CARE
     Dosage: UNK
     Route: 065
  2. JAKAVI [Suspect]
     Active Substance: RUXOLITINIB
     Indication: POLYCYTHAEMIA VERA
     Dosage: 5 MG, BID
     Route: 048
     Dates: start: 20190120, end: 201907

REACTIONS (45)
  - Blood alkaline phosphatase increased [Unknown]
  - Blood creatinine increased [Unknown]
  - Mean cell haemoglobin concentration increased [Unknown]
  - Tri-iodothyronine free decreased [Unknown]
  - Platelet count increased [Unknown]
  - Haemoglobin decreased [Unknown]
  - Prothrombin time prolonged [Unknown]
  - Blood bicarbonate decreased [Unknown]
  - Blood phosphorus increased [Unknown]
  - Blood potassium increased [Unknown]
  - Lymphocyte percentage decreased [Unknown]
  - Prothrombin time ratio decreased [Unknown]
  - Blood uric acid increased [Unknown]
  - Alanine aminotransferase increased [Unknown]
  - C-reactive protein increased [Unknown]
  - Blood fibrinogen increased [Unknown]
  - Mean cell haemoglobin decreased [Unknown]
  - Gastrointestinal necrosis [Not Recovered/Not Resolved]
  - Glomerular filtration rate decreased [None]
  - Fall [Not Recovered/Not Resolved]
  - Blood albumin decreased [Unknown]
  - Intestinal ischaemia [Not Recovered/Not Resolved]
  - Fibrin D dimer increased [Unknown]
  - Myelocyte count increased [Unknown]
  - Blood sodium increased [Unknown]
  - Red blood cell count decreased [Unknown]
  - White blood cell count increased [Unknown]
  - Anion gap increased [Unknown]
  - Blood creatine phosphokinase increased [Unknown]
  - Haematocrit decreased [Unknown]
  - Hypovolaemic shock [Fatal]
  - Pelvic haemorrhage [Not Recovered/Not Resolved]
  - Blood lactate dehydrogenase increased [Unknown]
  - Monocyte percentage decreased [Unknown]
  - Neutrophil percentage increased [Unknown]
  - Red cell distribution width increased [Unknown]
  - Urea urine increased [Unknown]
  - Blood bilirubin increased [Unknown]
  - Creatinine urine decreased [Unknown]
  - Aspartate aminotransferase increased [Unknown]
  - Erythroblast count increased [Unknown]
  - Blood glucose increased [Unknown]
  - Mean cell volume decreased [Unknown]
  - Blood urea increased [Unknown]
  - Thyroxine free increased [Unknown]

NARRATIVE: CASE EVENT DATE: 20190403
